FAERS Safety Report 5684511-7 (Version None)
Quarter: 2008Q1

REPORT INFORMATION
  Report Type: 
  Country: None (occurrence: None)
  Receive Date: 20080328
  Receipt Date: 20080318
  Transmission Date: 20080703
  Serious: Yes (Hospitalization)
  Sender: FDA-Public Use
  Company Number: JP-ROCHE-554615

PATIENT
  Age: 70 Year
  Sex: Male

DRUGS (2)
  1. TAMIFLU [Suspect]
     Indication: PYREXIA
     Route: 048
     Dates: start: 20080314
  2. CLARITHROMYCIN [Suspect]
     Indication: DRUG USE FOR UNKNOWN INDICATION
     Dosage: FORM REPORTED AS ORAL FORMULATION (NOT OTHERWISE SEPCIFIED).
     Route: 048
     Dates: start: 20080314

REACTIONS (1)
  - DISSEMINATED INTRAVASCULAR COAGULATION [None]
